FAERS Safety Report 9979206 (Version 1)
Quarter: 2014Q1

REPORT INFORMATION
  Report Type: Report from Study
  Country: US (occurrence: US)
  Receive Date: 20140306
  Receipt Date: 20140306
  Transmission Date: 20141002
  Serious: No
  Sender: FDA-Public Use
  Company Number: US-ABBVIE-13P-163-1169398-00

PATIENT
  Age: 63 Year
  Sex: Male
  Weight: 106.24 kg

DRUGS (7)
  1. HUMIRA [Suspect]
     Indication: PSORIASIS
     Route: 058
     Dates: start: 201310
  2. CARVEDILOL [Concomitant]
     Indication: HEART RATE
     Route: 048
  3. LISINOPRIL [Concomitant]
     Indication: CARDIAC DISORDER
     Route: 048
  4. SIMVASTATIN [Concomitant]
     Indication: CARDIAC DISORDER
     Route: 048
  5. LEVOTHYROXINE [Concomitant]
     Indication: THYROID DISORDER
     Route: 048
  6. IBUPROFEN [Concomitant]
     Indication: PAIN
     Route: 048
  7. NITROGLYCERIN [Concomitant]
     Indication: PRODUCT USED FOR UNKNOWN INDICATION

REACTIONS (1)
  - Muscle tightness [Not Recovered/Not Resolved]
